FAERS Safety Report 10270984 (Version 2)
Quarter: 2014Q3

REPORT INFORMATION
  Report Type: Spontaneous
  Country: DK (occurrence: None)
  Receive Date: 20140626
  Receipt Date: 20140710
  Transmission Date: 20150326
  Serious: Yes (Death, Congenital Anomaly, Other)
  Sender: FDA-Public Use
  Company Number: AUR-APL-2014-06588

PATIENT
  Sex: Female

DRUGS (1)
  1. SERTRALINE FILM-COATED TABLET (SERTALINE) FILM-COATED TABLET [Suspect]
     Active Substance: SERTRALINE HYDROCHLORIDE
     Indication: OBSESSIVE-COMPULSIVE DISORDER
     Route: 064
     Dates: end: 20140217

REACTIONS (3)
  - Maternal drugs affecting foetus [None]
  - Ventricular septal defect [None]
  - Pulmonary hypertension [None]
